FAERS Safety Report 23871966 (Version 2)
Quarter: 2024Q2

REPORT INFORMATION
  Report Type: Spontaneous
  Country: US (occurrence: US)
  Receive Date: 20240520
  Receipt Date: 20240607
  Transmission Date: 20240715
  Serious: Yes (Hospitalization)
  Sender: FDA-Public Use
  Company Number: US-CELLTRION INC.-2024US011143

PATIENT

DRUGS (2)
  1. TRUXIMA [Suspect]
     Active Substance: RITUXIMAB-ABBS
     Indication: Chronic lymphocytic leukaemia
     Dosage: EVERY THREE WEEKS; TOTAL OF 6 DOSES
     Route: 042
     Dates: start: 20240503
  2. TRUXIMA [Suspect]
     Active Substance: RITUXIMAB-ABBS
     Indication: Chronic lymphocytic leukaemia
     Dosage: EVERY THREE WEEKS; TOTAL OF 6 DOSES
     Route: 042
     Dates: start: 20240602

REACTIONS (1)
  - Lymphadenopathy [Not Recovered/Not Resolved]
